FAERS Safety Report 19836036 (Version 1)
Quarter: 2021Q3

REPORT INFORMATION
  Report Type: Spontaneous
  Country: JP (occurrence: JP)
  Receive Date: 20210916
  Receipt Date: 20210916
  Transmission Date: 20211014
  Serious: Yes (Other)
  Sender: FDA-Public Use
  Company Number: JP-BEH-2020126127

PATIENT
  Age: 35 Year
  Sex: Female
  Weight: 50 kg

DRUGS (2)
  1. HIZENTRA [Suspect]
     Active Substance: HUMAN IMMUNOGLOBULIN G
     Indication: HYPOGAMMAGLOBULINAEMIA
     Dosage: 6 GRAM
     Route: 058
     Dates: start: 20201207
  2. HIZENTRA [Suspect]
     Active Substance: HUMAN IMMUNOGLOBULIN G
     Dosage: 8 GRAM
     Route: 058

REACTIONS (2)
  - Maternal exposure during pregnancy [Unknown]
  - Gestational diabetes [Unknown]
